FAERS Safety Report 16466494 (Version 2)
Quarter: 2019Q3

REPORT INFORMATION
  Report Type: Spontaneous
  Country: PT (occurrence: PT)
  Receive Date: 20190622
  Receipt Date: 20190706
  Transmission Date: 20191004
  Serious: Yes (Death, Life-Threatening, Other)
  Sender: FDA-Public Use
  Company Number: PT-009507513-1906PRT007627

PATIENT
  Age: 62 Year
  Sex: Male

DRUGS (8)
  1. DEXAMETHASONE. [Concomitant]
     Active Substance: DEXAMETHASONE
     Route: 042
  2. ONDANSETRON [Concomitant]
     Active Substance: ONDANSETRON
     Route: 042
  3. SODIUM CHLORIDE. [Concomitant]
     Active Substance: SODIUM CHLORIDE
     Dosage: 1000 MILLILITER
  4. POTASSIUM CHLORIDE. [Concomitant]
     Active Substance: POTASSIUM CHLORIDE
     Dosage: 2 FORMULAS
  5. IVEMEND [Suspect]
     Active Substance: FOSAPREPITANT DIMEGLUMINE
     Indication: PREMEDICATION
     Dosage: 10 MILLILITER
  6. MANNITOL. [Concomitant]
     Active Substance: MANNITOL
     Dosage: 250 MILLILITER
  7. POTASSIUM CHLORIDE. [Concomitant]
     Active Substance: POTASSIUM CHLORIDE
     Dosage: 1 DOSAGE FORM (HALF OF INITIAL)
  8. LORAZEPAM. [Concomitant]
     Active Substance: LORAZEPAM
     Route: 048

REACTIONS (4)
  - Seizure [Unknown]
  - Bradycardia [Fatal]
  - Anaphylactic reaction [Unknown]
  - Tachycardia [Unknown]
